FAERS Safety Report 6222393-5 (Version None)
Quarter: 2009Q2

REPORT INFORMATION
  Report Type: 
  Country: None (occurrence: None)
  Receive Date: 20090608
  Receipt Date: 20090528
  Transmission Date: 20091009
  Serious: Yes (Hospitalization)
  Sender: FDA-Public Use
  Company Number: US-GENENTECH-283683

PATIENT
  Sex: Female

DRUGS (7)
  1. RITUXIMAB [Suspect]
     Indication: B-CELL LYMPHOMA
     Dosage: 375 MG/M2, Q3W
     Route: 042
     Dates: start: 20090424
  2. CYCLOPHOSPHAMIDE [Concomitant]
     Indication: B-CELL LYMPHOMA
     Dosage: 300 MG/M2, DAYS 2,3,4
     Route: 042
  3. MESNA [Concomitant]
     Indication: B-CELL LYMPHOMA
     Dosage: 600 MG/M2,
     Route: 042
  4. DOXORUBICIN HCL [Concomitant]
     Indication: B-CELL LYMPHOMA
     Dosage: 50 MG/M2, DAYS 5 + 12
     Route: 042
  5. DEXAMETHASONE [Concomitant]
     Indication: B-CELL LYMPHOMA
     Dosage: 40 MG, DAILY ON DAYS 2-5 + 12-15
     Route: 048
  6. METHOTREXATE [Concomitant]
     Indication: B-CELL LYMPHOMA
     Dosage: UNK
     Route: 042
     Dates: start: 20090424
  7. CYTARABINE [Concomitant]
     Indication: B-CELL LYMPHOMA
     Dosage: UNK
     Route: 042
     Dates: start: 20090424

REACTIONS (1)
  - EMBOLISM [None]
